FAERS Safety Report 17146499 (Version 1)
Quarter: 2019Q4

REPORT INFORMATION
  Report Type: Report from Study
  Country: JP (occurrence: JP)
  Receive Date: 20191212
  Receipt Date: 20191212
  Transmission Date: 20200122
  Serious: Yes (Other)
  Sender: FDA-Public Use
  Company Number: NVSJ2019JP005147

PATIENT
  Age: 71 Year
  Sex: Female
  Weight: 42.5 kg

DRUGS (16)
  1. FILGRASTIM BS INJ. SYRINGE [Suspect]
     Active Substance: FILGRASTIM
     Dosage: 75 UG, QD
     Route: 058
     Dates: start: 20190404, end: 20190406
  2. MAGMITT [Concomitant]
     Active Substance: MAGNESIUM OXIDE
     Indication: PRODUCT USED FOR UNKNOWN INDICATION
     Dosage: 3 DF,UNK
     Route: 048
     Dates: start: 20190322
  3. FILGRASTIM BS INJ. SYRINGE [Suspect]
     Active Substance: FILGRASTIM
     Dosage: 75 UG, QD
     Route: 058
     Dates: start: 20190329, end: 20190329
  4. CEFEPIME HYDROCHLORIDE. [Concomitant]
     Active Substance: CEFEPIME HYDROCHLORIDE
     Indication: PRODUCT USED FOR UNKNOWN INDICATION
     Dosage: 2 G, BID
     Route: 042
     Dates: start: 20190220, end: 20190223
  5. CYLOCIDE [Suspect]
     Active Substance: CYTARABINE
     Dosage: 2000 MG
     Route: 041
     Dates: start: 20190226, end: 20190227
  6. FOLIAMIN [Concomitant]
     Active Substance: FOLIC ACID
     Indication: PRODUCT USED FOR UNKNOWN INDICATION
     Dosage: 3 DF,UNK
     Route: 048
     Dates: start: 20190208
  7. LAC-B [Concomitant]
     Active Substance: BIFIDOBACTERIUM SPP.
     Indication: PRODUCT USED FOR UNKNOWN INDICATION
     Dosage: 30 MG,UNK
     Route: 048
     Dates: start: 20190228
  8. FILGRASTIM BS INJ. SYRINGE [Suspect]
     Active Substance: FILGRASTIM
     Dosage: 75 UG, QD
     Route: 058
     Dates: start: 20190418, end: 20190420
  9. CYLOCIDE [Suspect]
     Active Substance: CYTARABINE
     Indication: LYMPHOMA
     Dosage: 2000 MG,UNKNOWN
     Route: 041
     Dates: start: 20190207, end: 20190208
  10. CEFEPIME HYDROCHLORIDE. [Concomitant]
     Active Substance: CEFEPIME HYDROCHLORIDE
     Dosage: 2 G, BID
     Route: 042
     Dates: start: 20190317, end: 20190318
  11. CEFAZOLIN SODIUM. [Concomitant]
     Active Substance: CEFAZOLIN SODIUM
     Indication: PRODUCT USED FOR UNKNOWN INDICATION
     Dosage: 2 G, TID
     Route: 042
     Dates: start: 20190224, end: 20190226
  12. CYLOCIDE [Suspect]
     Active Substance: CYTARABINE
     Dosage: 1100 MG
     Route: 041
     Dates: start: 20190319, end: 20190321
  13. CYLOCIDE [Suspect]
     Active Substance: CYTARABINE
     Dosage: 1200 MG
     Route: 041
     Dates: start: 20190409, end: 20190411
  14. MIYA-BM [Concomitant]
     Active Substance: CLOSTRIDIUM BUTYRICUM SPORES STRAIN M-55
     Indication: PRODUCT USED FOR UNKNOWN INDICATION
     Dosage: 6 DF,UNK
     Route: 048
     Dates: start: 20190208
  15. CEFEPIME HYDROCHLORIDE. [Concomitant]
     Active Substance: CEFEPIME HYDROCHLORIDE
     Dosage: 2 G, BID
     Route: 042
     Dates: start: 20190404, end: 20190408
  16. FILGRASTIM BS INJ. SYRINGE [Suspect]
     Active Substance: FILGRASTIM
     Indication: NEUTROPENIA
     Dosage: 75 UG, QD
     Route: 058
     Dates: start: 20190215, end: 20190221

REACTIONS (5)
  - Febrile neutropenia [Recovered/Resolved]
  - White blood cell count decreased [Unknown]
  - Platelet count decreased [Unknown]
  - Platelet count decreased [Recovered/Resolved]
  - Anaemia [Recovered/Resolved]

NARRATIVE: CASE EVENT DATE: 20190220
